FAERS Safety Report 7366128-1 (Version None)
Quarter: 2011Q1

REPORT INFORMATION
  Report Type: 
  Country: None (occurrence: None)
  Receive Date: 20110322
  Receipt Date: 20110308
  Transmission Date: 20110831
  Serious: Yes (Hospitalization)
  Sender: FDA-Public Use
  Company Number: US-JNJFOC-20070805586

PATIENT
  Sex: Male
  Weight: 31.7 kg

DRUGS (7)
  1. MERCAPTOPURINE [Concomitant]
     Dosage: 3 TIMES PER WEEK
  2. INFLIXIMAB [Suspect]
     Route: 042
  3. METHOTREXATE [Concomitant]
     Route: 048
  4. PREDNISONE [Concomitant]
  5. M.V.I. [Concomitant]
     Dosage: 1 TABLET DAILY
     Route: 048
  6. INFLIXIMAB [Suspect]
     Indication: INFLAMMATORY BOWEL DISEASE
     Dosage: TOTAL 2 DOSES
     Route: 042
  7. CIPRO [Concomitant]

REACTIONS (2)
  - HAEMOGLOBIN DECREASED [None]
  - SMALL INTESTINAL OBSTRUCTION [None]
